FAERS Safety Report 12037158 (Version 1)
Quarter: 2016Q1

REPORT INFORMATION
  Report Type: Spontaneous
  Country: US (occurrence: None)
  Receive Date: 20160205
  Receipt Date: 20160205
  Transmission Date: 20160526
  Serious: Yes (Other)
  Sender: FDA-Public Use
  Company Number: None

PATIENT
  Age: 72 Year
  Sex: Female
  Weight: 68.04 kg

DRUGS (3)
  1. METOPOROLOL [Concomitant]
  2. PROLIA [Suspect]
     Active Substance: DENOSUMAB
     Indication: OSTEOPOROSIS
     Dosage: 1 SHOT, INJECTION
     Dates: start: 20150308
  3. RAMIPRIL. [Concomitant]
     Active Substance: RAMIPRIL

REACTIONS (8)
  - Herpes zoster [None]
  - Gait disturbance [None]
  - Pain in jaw [None]
  - Gingival swelling [None]
  - Exposed bone in jaw [None]
  - Arthralgia [None]
  - Gingival pain [None]
  - Dysphagia [None]
